FAERS Safety Report 11658928 (Version 1)
Quarter: 2015Q4

REPORT INFORMATION
  Report Type: Spontaneous
  Country: US (occurrence: None)
  Receive Date: 20151023
  Receipt Date: 20151023
  Transmission Date: 20160304
  Serious: No
  Sender: FDA-Public Use
  Company Number: None

PATIENT
  Age: 37 Year
  Sex: Female

DRUGS (10)
  1. DOZZOPAM [Concomitant]
  2. OXYCOXANE [Concomitant]
  3. AMETHA [Concomitant]
  4. AMITRIPTYLIN [Concomitant]
     Active Substance: AMITRIPTYLINE
  5. FLUONETINE [Concomitant]
  6. GABAPENTIN. [Concomitant]
     Active Substance: GABAPENTIN
  7. RELPAX [Concomitant]
     Active Substance: ELETRIPTAN HYDROBROMIDE
  8. FORTEO [Suspect]
     Active Substance: TERIPARATIDE
     Indication: BONE DISORDER
     Dosage: 20MCG?QD?SQ
     Route: 058
  9. AMPHETAMIN [Concomitant]
  10. ARIZOPRODOL [Concomitant]

REACTIONS (4)
  - Migraine [None]
  - Neck pain [None]
  - Dysgeusia [None]
  - Nausea [None]
